FAERS Safety Report 15214015 (Version 1)
Quarter: 2018Q4

REPORT INFORMATION
  Report Type: Spontaneous
  Country: US (occurrence: US)
  Receive Date: 20180730
  Receipt Date: 20180730
  Transmission Date: 20190204
  Serious: No
  Sender: FDA-Public Use
  Company Number: US-JNJFOC-20180719816

PATIENT
  Age: 2 Decade
  Sex: Male

DRUGS (1)
  1. CHILDRENS TYLENOL [Suspect]
     Active Substance: ACETAMINOPHEN
     Indication: NASOPHARYNGITIS
     Route: 048

REACTIONS (3)
  - Oropharyngeal discomfort [Recovered/Resolved]
  - Pharyngeal oedema [Recovered/Resolved]
  - Product administered to patient of inappropriate age [Unknown]
